FAERS Safety Report 16526300 (Version 2)
Quarter: 2019Q3

REPORT INFORMATION
  Report Type: Report from Study
  Country: IT (occurrence: IT)
  Receive Date: 20190703
  Receipt Date: 20190808
  Transmission Date: 20191004
  Serious: Yes (Hospitalization)
  Sender: FDA-Public Use
  Company Number: IT-PFIZER INC-2019274717

PATIENT
  Age: 8 Year
  Sex: Male
  Weight: 51 kg

DRUGS (25)
  1. CYTARABINE. [Suspect]
     Active Substance: CYTARABINE
     Dosage: 30 MG, CYCLIC
     Route: 037
     Dates: start: 20180925, end: 20181002
  2. VINCRISTINE SULFATE. [Suspect]
     Active Substance: VINCRISTINE SULFATE
     Indication: BURKITT^S LYMPHOMA
     Dosage: 2 MG, CYCLIC
     Route: 042
     Dates: start: 20181002, end: 20181002
  3. URBASON [METHYLPREDNISOLONE] [Concomitant]
     Active Substance: METHYLPREDNISOLONE
     Dosage: 10 MG, UNK
     Route: 037
     Dates: start: 20180925, end: 20181002
  4. LASIX [Concomitant]
     Active Substance: FUROSEMIDE
     Dosage: 20 MG, UNK
     Route: 042
     Dates: start: 20180927, end: 20181001
  5. MYCOSTATIN [Concomitant]
     Active Substance: NYSTATIN
     Dosage: 15 ML, UNK
     Route: 048
     Dates: start: 20180925
  6. CYTARABINE. [Suspect]
     Active Substance: CYTARABINE
     Indication: BURKITT^S LYMPHOMA
     Dosage: 222 MG, CYCLIC
     Route: 042
     Dates: start: 20181005
  7. METHOTREXATE SODIUM. [Suspect]
     Active Substance: METHOTREXATE SODIUM
     Dosage: 12 MG, CYCLIC
     Route: 037
     Dates: start: 20180925, end: 20181002
  8. UROMITEXAN [Suspect]
     Active Substance: MESNA
     Dosage: 890 MG, UNK
     Dates: start: 20181002, end: 20181006
  9. DECADRON [Concomitant]
     Active Substance: DEXAMETHASONE
     Dosage: 7.50 MG, UNK
     Dates: start: 20181007, end: 20181008
  10. DECADRON [Concomitant]
     Active Substance: DEXAMETHASONE
     Dosage: 4.12 MG, UNK
     Dates: start: 20181009, end: 20181010
  11. ZOFRAN [Concomitant]
     Active Substance: ONDANSETRON HYDROCHLORIDE
     Dosage: 16 MG, UNK
     Route: 042
     Dates: start: 20180927, end: 20181006
  12. OMEPRAZOLE. [Concomitant]
     Active Substance: OMEPRAZOLE
     Dosage: UNK
     Route: 048
     Dates: start: 20181009
  13. ZYLORIC [Concomitant]
     Active Substance: ALLOPURINOL
     Dosage: 30 MG, UNK
     Route: 048
     Dates: start: 20180927, end: 20181001
  14. LEDERFOLIN [Concomitant]
     Active Substance: LEUCOVORIN CALCIUM
     Dosage: 11 MG, UNK
     Route: 042
     Dates: start: 20181003, end: 20181004
  15. OMEPRAZOLE. [Concomitant]
     Active Substance: OMEPRAZOLE
     Dosage: 40 MG, UNK
     Route: 042
     Dates: start: 20180927, end: 20181008
  16. DECADRON [Concomitant]
     Active Substance: DEXAMETHASONE
     Dosage: 14.8 MG, UNK
     Dates: start: 20180829, end: 20181005
  17. DEURSIL [Concomitant]
     Active Substance: URSODIOL
     Dosage: 300 MG, UNK
     Route: 048
     Dates: start: 20181012, end: 20181017
  18. MABTHERA [Suspect]
     Active Substance: RITUXIMAB
     Indication: BURKITT^S LYMPHOMA
     Dosage: 555 MG, UNK
     Route: 042
     Dates: start: 20181001, end: 20181001
  19. IFOSFAMIDE. [Suspect]
     Active Substance: IFOSFAMIDE
     Indication: BURKITT^S LYMPHOMA
     Dosage: 1184 MG, CYCLIC
     Route: 042
     Dates: start: 20181002, end: 20181006
  20. BACTRIM [Concomitant]
     Active Substance: SULFAMETHOXAZOLE\TRIMETHOPRIM
     Dosage: 20 ML, UNK
     Route: 048
     Dates: start: 20180925
  21. METHOTREXATE SODIUM. [Suspect]
     Active Substance: METHOTREXATE SODIUM
     Indication: BURKITT^S LYMPHOMA
     Dosage: 1480 MG, CYCLIC
     Route: 042
     Dates: start: 20181002, end: 20181002
  22. UROMITEXAN [Suspect]
     Active Substance: MESNA
     Indication: BURKITT^S LYMPHOMA
     Dosage: 110 MG, CYCLIC
     Route: 042
     Dates: start: 20180927, end: 20180928
  23. CYCLOPHOSPHAMIDE. [Suspect]
     Active Substance: CYCLOPHOSPHAMIDE
     Indication: BURKITT^S LYMPHOMA
     Dosage: 296 MG, CYCLIC
     Route: 042
     Dates: start: 20180927, end: 20180928
  24. DECADRON [Concomitant]
     Active Substance: DEXAMETHASONE
     Dosage: 7.4 MG, UNK
     Route: 048
     Dates: start: 20180927, end: 20180928
  25. DECADRON [Concomitant]
     Active Substance: DEXAMETHASONE
     Dosage: 2.87 MG, UNK
     Dates: start: 20101011, end: 20181012

REACTIONS (2)
  - Leukopenia [Recovered/Resolved]
  - Neutropenia [Recovered/Resolved]

NARRATIVE: CASE EVENT DATE: 20181012
